FAERS Safety Report 20407448 (Version 1)
Quarter: 2022Q1

REPORT INFORMATION
  Report Type: Report from Study
  Country: US (occurrence: None)
  Receive Date: 20220131
  Receipt Date: 20220131
  Transmission Date: 20220424
  Serious: Yes (Other)
  Sender: FDA-Public Use
  Company Number: US-ROCHE-3008715

PATIENT

DRUGS (1)
  1. ATEZOLIZUMAB [Suspect]
     Active Substance: ATEZOLIZUMAB
     Indication: Bladder transitional cell carcinoma
     Route: 065

REACTIONS (4)
  - Anaemia [Unknown]
  - Back pain [Unknown]
  - Sepsis [Unknown]
  - Pneumonia [Unknown]
